FAERS Safety Report 6375973-0 (Version None)
Quarter: 2009Q3

REPORT INFORMATION
  Report Type: 
  Country: None (occurrence: None)
  Receive Date: 20090924
  Receipt Date: 20090914
  Transmission Date: 20100115
  Serious: Yes (Other)
  Sender: FDA-Public Use
  Company Number: VE-GENENTECH-290824

PATIENT

DRUGS (1)
  1. BEVACIZUMAB [Suspect]
     Indication: MACULAR OEDEMA
     Route: 031

REACTIONS (6)
  - CATARACT [None]
  - CEREBROVASCULAR ACCIDENT [None]
  - HYPERTENSION [None]
  - INTRAOCULAR PRESSURE INCREASED [None]
  - MYOCARDIAL INFARCTION [None]
  - RETINAL DETACHMENT [None]
